FAERS Safety Report 8045029-X (Version None)
Quarter: 2012Q1

REPORT INFORMATION
  Report Type: 
  Country: None (occurrence: None)
  Receive Date: 20120113
  Receipt Date: 20120110
  Transmission Date: 20120608
  Serious: Yes (Hospitalization)
  Sender: FDA-Public Use
  Company Number: PHEH2011US012589

PATIENT
  Sex: Female

DRUGS (6)
  1. VALTURNA [Suspect]
     Indication: BLOOD PRESSURE
     Dosage: 1 DF (300/320 MG) QD
  2. DIOVAN HCT [Suspect]
  3. ASPIRIN [Concomitant]
     Dosage: 325 MG, QD
  4. POTASSIUM CHLORIDE [Suspect]
  5. CRESTOR [Concomitant]
     Dosage: 20 MG, QD
  6. CARVEDILOL [Concomitant]
     Dosage: 12.5 MG, QD

REACTIONS (5)
  - HEART RATE DECREASED [None]
  - BLOOD POTASSIUM DECREASED [None]
  - CHEST PAIN [None]
  - MUSCLE SPASMS [None]
  - ANXIETY [None]
